FAERS Safety Report 6837106-3 (Version None)
Quarter: 2010Q3

REPORT INFORMATION
  Report Type: 
  Country: None (occurrence: None)
  Receive Date: 20100713
  Receipt Date: 20070502
  Transmission Date: 20110219
  Serious: No
  Sender: FDA-Public Use
  Company Number: US-PFIZER INC-2007036791

PATIENT
  Sex: Male
  Weight: 85 kg

DRUGS (10)
  1. CHANTIX [Suspect]
     Dates: start: 20070502
  2. LISINOPRIL [Concomitant]
     Indication: BLOOD PRESSURE ABNORMAL
  3. NEURONTIN [Concomitant]
     Indication: BACK DISORDER
  4. DAYPRO [Concomitant]
     Indication: BACK DISORDER
  5. RESTORIL [Concomitant]
     Indication: SLEEP DISORDER
  6. EFFEXOR [Concomitant]
     Indication: DEPRESSION
  7. TRAZODONE HYDROCHLORIDE [Concomitant]
     Indication: SLEEP DISORDER
  8. FLEXERIL [Concomitant]
  9. ALL OTHER THERAPEUTIC PRODUCTS [Concomitant]
  10. FOLIC ACID [Concomitant]

REACTIONS (1)
  - PRURITUS [None]
